FAERS Safety Report 24269290 (Version 1)
Quarter: 2024Q3

REPORT INFORMATION
  Report Type: Spontaneous
  Country: US (occurrence: US)
  Receive Date: 20240830
  Receipt Date: 20240830
  Transmission Date: 20241017
  Serious: No
  Sender: MERCK
  Company Number: US-009507513-2408USA008178

PATIENT
  Sex: Female

DRUGS (4)
  1. WINREVAIR [Suspect]
     Active Substance: SOTATERCEPT-CSRK
     Indication: Product used for unknown indication
     Dosage: UNK
  2. ORENITRAM [Suspect]
     Active Substance: TREPROSTINIL
     Indication: Pulmonary arterial hypertension
     Dosage: 5 MILLIGRAM (CURRENT DOSE), THREE TIMES A DAY (TID)
     Route: 048
     Dates: start: 202107
  3. AMBRISENTAN [Concomitant]
     Active Substance: AMBRISENTAN
  4. ADEMPAS [Concomitant]
     Active Substance: RIOCIGUAT
     Dosage: UNK

REACTIONS (6)
  - Fatigue [Not Recovered/Not Resolved]
  - Abdominal pain upper [Recovered/Resolved]
  - Therapy partial responder [Unknown]
  - Gastrointestinal disorder [Unknown]
  - Weight decreased [Unknown]
  - Diarrhoea [Not Recovered/Not Resolved]
